FAERS Safety Report 5320799-X (Version None)
Quarter: 2007Q2

REPORT INFORMATION
  Report Type: 
  Country: None (occurrence: None)
  Receive Date: 20070502
  Receipt Date: 20070425
  Transmission Date: 20071010
  Serious: Yes (Life-Threatening, Hospitalization)
  Sender: FDA-Public Use
  Company Number: AE070402.ACA

PATIENT
  Sex: Male

DRUGS (3)
  1. AMICAR [Suspect]
  2. OMACOR [Suspect]
     Indication: DRUG USE FOR UNKNOWN INDICATION
  3. PLATELET INHIBITOR [Concomitant]

REACTIONS (5)
  - DRUG DISPENSING ERROR [None]
  - IN-STENT ARTERIAL RESTENOSIS [None]
  - MEDICATION ERROR [None]
  - MYOCARDIAL INFARCTION [None]
  - UNEVALUABLE EVENT [None]
